FAERS Safety Report 11637690 (Version 1)
Quarter: 2015Q4

REPORT INFORMATION
  Report Type: Spontaneous
  Country: US (occurrence: US)
  Receive Date: 20151016
  Receipt Date: 20151016
  Transmission Date: 20160304
  Serious: No
  Sender: FDA-Public Use
  Company Number: US-GLAXOSMITHKLINE-US2015146242

PATIENT
  Age: 57 Year
  Sex: Female

DRUGS (1)
  1. FLONASE [Suspect]
     Active Substance: FLUTICASONE PROPIONATE
     Indication: TINNITUS
     Dosage: UNK
     Dates: start: 20151006, end: 20151012

REACTIONS (5)
  - Tinnitus [Recovering/Resolving]
  - Cough [Recovering/Resolving]
  - Condition aggravated [Recovering/Resolving]
  - Nasal congestion [Recovering/Resolving]
  - Product use issue [Not Recovered/Not Resolved]

NARRATIVE: CASE EVENT DATE: 20151006
